FAERS Safety Report 14789175 (Version 2)
Quarter: 2018Q2

REPORT INFORMATION
  Report Type: Spontaneous
  Country: MY (occurrence: MY)
  Receive Date: 20180423
  Receipt Date: 20180427
  Transmission Date: 20180711
  Serious: Yes (Death, Other)
  Sender: FDA-Public Use
  Company Number: PHHY2018MY070507

PATIENT
  Age: 50 Year
  Sex: Male

DRUGS (1)
  1. COSENTYX [Suspect]
     Active Substance: SECUKINUMAB
     Indication: PSORIASIS
     Dosage: 300 MG, UNK
     Route: 065

REACTIONS (8)
  - Body temperature abnormal [Unknown]
  - Pharyngeal abscess [Unknown]
  - Pharyngitis [Unknown]
  - Sensation of foreign body [Unknown]
  - Dysphagia [Unknown]
  - Death [Fatal]
  - Anaemia [Unknown]
  - Candida infection [Unknown]

NARRATIVE: CASE EVENT DATE: 201803
